FAERS Safety Report 25030459 (Version 1)
Quarter: 2025Q1

REPORT INFORMATION
  Report Type: Spontaneous
  Country: PE (occurrence: PE)
  Receive Date: 20250303
  Receipt Date: 20250303
  Transmission Date: 20250409
  Serious: Yes (Hospitalization, Other)
  Sender: JOHNSON AND JOHNSON
  Company Number: PE-JNJFOC-20250259296

PATIENT
  Age: 52 Year
  Sex: Male

DRUGS (1)
  1. TECVAYLI [Suspect]
     Active Substance: TECLISTAMAB-CQYV
     Indication: Product used for unknown indication
     Route: 065
     Dates: start: 202404

REACTIONS (5)
  - COVID-19 pneumonia [Recovering/Resolving]
  - Pseudomonas infection [Recovering/Resolving]
  - Cytokine release syndrome [Unknown]
  - Adenovirus infection [Recovering/Resolving]
  - Enterovirus infection [Recovering/Resolving]

NARRATIVE: CASE EVENT DATE: 20241201
